FAERS Safety Report 12466344 (Version 1)
Quarter: 2016Q2

REPORT INFORMATION
  Report Type: Spontaneous
  Country: NG (occurrence: NG)
  Receive Date: 20160615
  Receipt Date: 20160615
  Transmission Date: 20160815
  Serious: Yes (Other)
  Sender: FDA-Public Use
  Company Number: NG-ROCHE-1775840

PATIENT

DRUGS (1)
  1. PEGASYS [Suspect]
     Active Substance: PEGINTERFERON ALFA-2A
     Indication: CHRONIC HEPATITIS B
     Dosage: 180MCG WAS GIVEN FOR 48 WEEKS
     Route: 058

REACTIONS (1)
  - Treatment failure [Unknown]
